FAERS Safety Report 14299167 (Version 1)
Quarter: 2017Q4

REPORT INFORMATION
  Report Type: Report from Study
  Country: None (occurrence: US)
  Receive Date: 20171218
  Receipt Date: 20171218
  Transmission Date: 20180321
  Serious: Yes (Hospitalization, Other)
  Sender: FDA-Public Use
  Company Number: US-ABBVIE-17P-163-2191123-00

PATIENT
  Age: 35 Year
  Sex: Female

DRUGS (4)
  1. TRUVADA [Suspect]
     Active Substance: EMTRICITABINE\TENOFOVIR DISOPROXIL FUMARATE
     Indication: HIV INFECTION
     Dosage: EARLIEST DRUG EXPOSURE PRIOR TO CONCEPTION AND FIRST TRIMESTER
     Route: 048
     Dates: end: 20170607
  2. DESCOVY [Suspect]
     Active Substance: EMTRICITABINE\TENOFOVIR ALAFENAMIDE FUMARATE
     Indication: HIV INFECTION
     Dosage: EARLIEST DRUG EXPOSURE IN FIRST TRIMESTER
     Route: 048
     Dates: start: 20170608
  3. TIVICAY [Suspect]
     Active Substance: DOLUTEGRAVIR SODIUM
     Indication: HIV INFECTION
     Dosage: EARLIEST DRUG EXPOSURE IN FIRST TRIMESTER
     Route: 048
     Dates: start: 20170608
  4. KALETRA [Suspect]
     Active Substance: LOPINAVIR\RITONAVIR
     Indication: HIV INFECTION
     Route: 048
     Dates: end: 20170607

REACTIONS (3)
  - Placenta praevia [Unknown]
  - Exposure during pregnancy [Unknown]
  - Placenta accreta [Unknown]
